FAERS Safety Report 7730461-1 (Version None)
Quarter: 2011Q3

REPORT INFORMATION
  Report Type: 
  Country: None (occurrence: None)
  Receive Date: 20110822
  Receipt Date: 20110808
  Transmission Date: 20111222
  Serious: Yes (Hospitalization)
  Sender: FDA-Public Use
  Company Number: US-145235

PATIENT
  Sex: Female
  Weight: 113.3993 kg

DRUGS (6)
  1. WINRHO SDF LIQUID [Suspect]
  2. WINRHO SDF LIQUID [Suspect]
  3. WINRHO SDF LIQUID [Suspect]
     Indication: IDIOPATHIC THROMBOCYTOPENIC PURPURA
     Dosage: SEE IMAGE
     Route: 042
     Dates: start: 20110715, end: 20110715
  4. WINRHO SDF LIQUID [Suspect]
     Indication: IDIOPATHIC THROMBOCYTOPENIC PURPURA
     Dosage: SEE IMAGE
     Route: 042
     Dates: start: 20110715, end: 20110715
  5. WINRHO SDF LIQUID [Suspect]
     Indication: IDIOPATHIC THROMBOCYTOPENIC PURPURA
     Dosage: SEE IMAGE
     Route: 042
     Dates: start: 20110715, end: 20110715
  6. WINRHO SDF LIQUID [Suspect]

REACTIONS (1)
  - EXTRAVASCULAR HAEMOLYSIS [None]
